FAERS Safety Report 19500102 (Version 2)
Quarter: 2021Q3

REPORT INFORMATION
  Report Type: Report from Study
  Country: EG (occurrence: EG)
  Receive Date: 20210706
  Receipt Date: 20210731
  Transmission Date: 20211014
  Serious: Yes (Other)
  Sender: FDA-Public Use
  Company Number: NVSC2021EG138886

PATIENT
  Age: 49 Year
  Sex: Female

DRUGS (4)
  1. JUSPRIN [Concomitant]
     Indication: PRODUCT USED FOR UNKNOWN INDICATION
     Dosage: 1 DF, QD, (81)
     Route: 065
  2. EXFORGE [Concomitant]
     Active Substance: AMLODIPINE BESYLATE\VALSARTAN
     Indication: PRODUCT USED FOR UNKNOWN INDICATION
     Dosage: UNK
     Route: 065
     Dates: end: 20210613
  3. ENTRESTO [Suspect]
     Active Substance: SACUBITRIL\VALSARTAN
     Indication: CARDIAC FAILURE
     Dosage: 50 MG, BID (100 MG HALF TABLET TWICE DAILY)
     Route: 048
     Dates: start: 20210617
  4. EXAMIDE [Concomitant]
     Indication: PRODUCT USED FOR UNKNOWN INDICATION
     Dosage: 1 DF, QD (10)
     Route: 065

REACTIONS (9)
  - Gastrooesophageal reflux disease [Recovering/Resolving]
  - Wrong technique in product usage process [Not Recovered/Not Resolved]
  - Oropharyngeal pain [Recovering/Resolving]
  - Asphyxia [Not Recovered/Not Resolved]
  - Pallor [Not Recovered/Not Resolved]
  - Eye colour change [Not Recovered/Not Resolved]
  - Choking [Recovering/Resolving]
  - Fatigue [Not Recovered/Not Resolved]
  - Cough [Recovering/Resolving]

NARRATIVE: CASE EVENT DATE: 20210618
